FAERS Safety Report 8009863-4 (Version None)
Quarter: 2011Q4

REPORT INFORMATION
  Report Type: 
  Country: None (occurrence: None)
  Receive Date: 20111228
  Receipt Date: 20111227
  Transmission Date: 20120403
  Serious: Yes (Disabling, Other)
  Sender: FDA-Public Use
  Company Number: US-BAYER-2011-123462

PATIENT
  Sex: Female

DRUGS (2)
  1. INTERFERON BETA-1B [Suspect]
     Indication: SECONDARY PROGRESSIVE MULTIPLE SCLEROSIS
     Dosage: UNK
     Dates: start: 20020129, end: 20040119
  2. INTERFERON BETA-1B [Suspect]
     Dosage: UNK
     Dates: start: 20040210, end: 20110701

REACTIONS (2)
  - GAIT DISTURBANCE [None]
  - MYOSITIS [None]
